FAERS Safety Report 8477962-9 (Version None)
Quarter: 2012Q2

REPORT INFORMATION
  Report Type: 
  Country: None (occurrence: None)
  Receive Date: 20120629
  Receipt Date: 20120622
  Transmission Date: 20120825
  Serious: Yes (Hospitalization)
  Sender: FDA-Public Use
  Company Number: US-BAYER-2012-015844

PATIENT
  Age: 22 Year
  Sex: Female
  Weight: 88.889 kg

DRUGS (3)
  1. VICODIN [Concomitant]
     Indication: PAIN
  2. MEFOXIN [Concomitant]
  3. YAZ [Suspect]
     Indication: CONTRACEPTION
     Dosage: UNK
     Dates: start: 20080101, end: 20100101

REACTIONS (6)
  - CHOLELITHIASIS [None]
  - PANCREATITIS [None]
  - INJURY [None]
  - GASTRITIS [None]
  - CHOLECYSTITIS CHRONIC [None]
  - PAIN [None]
